FAERS Safety Report 4664345-2 (Version None)
Quarter: 2005Q2

REPORT INFORMATION
  Report Type: 
  Country: None (occurrence: None)
  Receive Date: 20050518
  Receipt Date: 20050325
  Transmission Date: 20051028
  Serious: Yes (Other)
  Sender: FDA-Public Use
  Company Number: 2005AP01967

PATIENT
  Age: 78 Year
  Sex: Female

DRUGS (4)
  1. XYLOCAINE VISCOUS [Suspect]
     Indication: LOCAL ANAESTHESIA
     Route: 049
     Dates: start: 20050320, end: 20050320
  2. XYLOCAINE [Suspect]
     Indication: LOCAL ANAESTHESIA
     Route: 049
     Dates: start: 20050320, end: 20050320
  3. XYLOCAINE [Suspect]
     Indication: LOCAL ANAESTHESIA
     Route: 049
     Dates: start: 20050320, end: 20050320
  4. OMEPRAL [Concomitant]
     Route: 042
     Dates: start: 20050319, end: 20050322

REACTIONS (1)
  - LARYNGEAL OEDEMA [None]
